FAERS Safety Report 13252658 (Version 2)
Quarter: 2017Q2

REPORT INFORMATION
  Report Type: Spontaneous
  Country: DK (occurrence: DK)
  Receive Date: 20170220
  Receipt Date: 20170407
  Transmission Date: 20170830
  Serious: Yes (Death, Life-Threatening, Hospitalization, Other)
  Sender: FDA-Public Use
  Company Number: DK-BAYER-2017-026843

PATIENT
  Age: 84 Year
  Sex: Male
  Weight: 98 kg

DRUGS (18)
  1. MAVIK [Suspect]
     Active Substance: TRANDOLAPRIL
     Route: 048
  2. MAVIK [Suspect]
     Active Substance: TRANDOLAPRIL
     Route: 048
  3. ACETYLSALICYLIC ACID (} 100 MG) [Suspect]
     Active Substance: ASPIRIN
     Dosage: UNK
     Route: 048
  4. NIFEDIPINE. [Suspect]
     Active Substance: NIFEDIPINE
     Dosage: UNK
     Route: 048
  5. OXAZEPAM. [Suspect]
     Active Substance: OXAZEPAM
     Dosage: UNK
     Route: 048
  6. MAVIK [Suspect]
     Active Substance: TRANDOLAPRIL
     Route: 048
  7. IVABRADINE [Suspect]
     Active Substance: IVABRADINE
     Dosage: UNK
     Route: 048
  8. SIMVASTATIN. [Suspect]
     Active Substance: SIMVASTATIN
     Dosage: UNK
     Route: 048
  9. METOPROLOL. [Suspect]
     Active Substance: METOPROLOL
     Dosage: UNK
     Route: 048
  10. TRANDOLAPRIL. [Suspect]
     Active Substance: TRANDOLAPRIL
     Dosage: UNK
     Route: 048
  11. MAVIK [Suspect]
     Active Substance: TRANDOLAPRIL
     Route: 048
  12. MAVIK [Suspect]
     Active Substance: TRANDOLAPRIL
     Route: 048
  13. PARACETAMOL [Suspect]
     Active Substance: ACETAMINOPHEN
  14. MIRTAZAPINE. [Suspect]
     Active Substance: MIRTAZAPINE
     Dosage: UNK
     Route: 048
  15. MAVIK [Suspect]
     Active Substance: TRANDOLAPRIL
     Route: 048
  16. MAVIK [Suspect]
     Active Substance: TRANDOLAPRIL
     Route: 048
  17. MAVIK [Suspect]
     Active Substance: TRANDOLAPRIL
     Route: 048
  18. MAVIK [Suspect]
     Active Substance: TRANDOLAPRIL
     Route: 048

REACTIONS (8)
  - Pneumonia aspiration [None]
  - Intentional product misuse [None]
  - Oesophageal haemorrhage [None]
  - Bezoar [None]
  - Suicide attempt [None]
  - Oesophageal obstruction [None]
  - Intentional overdose [Fatal]
  - Toxicity to various agents [Fatal]
